FAERS Safety Report 6399264-7 (Version None)
Quarter: 2009Q4

REPORT INFORMATION
  Report Type: 
  Country: None (occurrence: None)
  Receive Date: 20091014
  Receipt Date: 20070712
  Transmission Date: 20100525
  Serious: Yes (Other)
  Sender: FDA-Public Use
  Company Number: US-ASTRAZENECA-2006UW22415

PATIENT
  Age: 603 Month
  Sex: Male
  Weight: 108.4 kg

DRUGS (33)
  1. SEROQUEL [Suspect]
     Indication: MENTAL DISORDER
     Route: 048
     Dates: start: 20000101
  2. SEROQUEL [Suspect]
     Indication: DEPRESSION
     Route: 048
     Dates: start: 20000101
  3. SEROQUEL [Suspect]
     Indication: ANXIETY
     Route: 048
     Dates: start: 20000101
  4. SEROQUEL [Suspect]
     Indication: PANIC DISORDER
     Route: 048
     Dates: start: 20000101
  5. SEROQUEL [Suspect]
     Indication: SLEEP DISORDER
     Route: 048
     Dates: start: 20000101
  6. SEROQUEL [Suspect]
     Indication: PARANOIA
     Route: 048
     Dates: start: 20000101
  7. SEROQUEL [Suspect]
     Indication: SCHIZOPHRENIA
     Route: 048
     Dates: start: 20000101
  8. SEROQUEL [Suspect]
     Dosage: 200MG-600MG
     Route: 048
     Dates: start: 20010319
  9. SEROQUEL [Suspect]
     Dosage: 200MG-600MG
     Route: 048
     Dates: start: 20010319
  10. SEROQUEL [Suspect]
     Dosage: 200MG-600MG
     Route: 048
     Dates: start: 20010319
  11. SEROQUEL [Suspect]
     Dosage: 200MG-600MG
     Route: 048
     Dates: start: 20010319
  12. SEROQUEL [Suspect]
     Dosage: 200MG-600MG
     Route: 048
     Dates: start: 20010319
  13. SEROQUEL [Suspect]
     Dosage: 200MG-600MG
     Route: 048
     Dates: start: 20010319
  14. SEROQUEL [Suspect]
     Dosage: 200MG-600MG
     Route: 048
     Dates: start: 20010319
  15. FLUOXETINE [Concomitant]
     Dates: start: 20040101, end: 20070101
  16. LIPITOR [Concomitant]
     Dates: start: 19990101
  17. ALLOPURINOL [Concomitant]
     Indication: ARTHRITIS
     Route: 048
     Dates: start: 20000301
  18. ASPIRIN [Concomitant]
     Route: 048
     Dates: start: 20000301
  19. COLCHICINE [Concomitant]
     Indication: ARTHRITIS
     Route: 048
     Dates: start: 20000301
  20. FELODIPINE [Concomitant]
     Indication: CARDIAC DISORDER
     Route: 048
     Dates: start: 20000301
  21. FELODIPINE [Concomitant]
     Indication: BLOOD PRESSURE
     Route: 048
     Dates: start: 20000301
  22. INDOMETHACIN [Concomitant]
     Indication: ARTHRITIS
     Dosage: 25MG-300MG
     Route: 048
     Dates: start: 20000301
  23. SIMVASTATIN [Concomitant]
     Indication: BLOOD CHOLESTEROL
     Dosage: 20MG-80MG
     Route: 048
     Dates: start: 20010319
  24. SIMVASTATIN [Concomitant]
     Indication: CARDIAC DISORDER
     Dosage: 20MG-80MG
     Route: 048
     Dates: start: 20010319
  25. LORAZEPAM [Concomitant]
     Indication: ANXIETY
     Dates: start: 20000301
  26. FLUOXETINE HCL/ PROZAC [Concomitant]
     Indication: DEPRESSION
     Dosage: 20MG-40MG
     Route: 048
     Dates: start: 20021001
  27. FLUOXETINE HCL/ PROZAC [Concomitant]
     Indication: OBSESSIVE THOUGHTS
     Dosage: 20MG-40MG
     Route: 048
     Dates: start: 20021001
  28. ATENOLOL [Concomitant]
     Indication: BLOOD PRESSURE
     Route: 048
     Dates: start: 20030101
  29. ATENOLOL [Concomitant]
     Indication: CARDIAC DISORDER
     Route: 048
     Dates: start: 20030101
  30. LOSARTAN POTASSIUM [Concomitant]
     Route: 048
     Dates: start: 20030101
  31. HYDROCHLOROTHIAZIDE [Concomitant]
     Route: 048
     Dates: start: 20020101
  32. NITROGLYCERIN [Concomitant]
     Indication: ANGINA PECTORIS
     Dates: start: 20010122
  33. NITROGLYCERIN [Concomitant]
     Indication: CHEST PAIN
     Dates: start: 20010122

REACTIONS (8)
  - ANGINA PECTORIS [None]
  - ARTERIOSCLEROSIS [None]
  - CORONARY ARTERY DISEASE [None]
  - DIABETES MELLITUS [None]
  - HYPERGLYCAEMIA [None]
  - MYOCARDIAL INFARCTION [None]
  - MYOCARDIAL ISCHAEMIA [None]
  - TYPE 2 DIABETES MELLITUS [None]
